FAERS Safety Report 16003636 (Version 1)
Quarter: 2019Q1

REPORT INFORMATION
  Report Type: Other
  Country: US (occurrence: US)
  Receive Date: 20190225
  Receipt Date: 20190225
  Transmission Date: 20190418
  Serious: Yes (Other)
  Sender: FDA-Public Use
  Company Number: US-BIOVITRUM-2019US0374

PATIENT
  Sex: Male

DRUGS (1)
  1. KINERET [Suspect]
     Active Substance: ANAKINRA
     Route: 058
     Dates: start: 20180425, end: 20190129

REACTIONS (4)
  - Nausea [Unknown]
  - Loss of consciousness [Unknown]
  - Hangover [Unknown]
  - Dizziness [Unknown]
